FAERS Safety Report 17183904 (Version 1)
Quarter: 2019Q4

REPORT INFORMATION
  Report Type: Report from Study
  Country: MX (occurrence: MX)
  Receive Date: 20191220
  Receipt Date: 20191220
  Transmission Date: 20200122
  Serious: Yes (Other)
  Sender: FDA-Public Use
  Company Number: MX-UCBSA-2019009802

PATIENT
  Age: 45 Year
  Sex: Female

DRUGS (6)
  1. LACOSAMIDE. [Suspect]
     Active Substance: LACOSAMIDE
     Dosage: 150 MILLIGRAM, 2X/DAY (BID)
     Route: 048
     Dates: start: 20190311, end: 2019
  2. IBUPROFEN. [Concomitant]
     Active Substance: IBUPROFEN
     Indication: HEADACHE
     Dosage: UNK
  3. LACOSAMIDE. [Suspect]
     Active Substance: LACOSAMIDE
     Indication: FRONTAL LOBE EPILEPSY
     Dosage: 50 MILLIGRAM, 2X/DAY (BID)
     Route: 048
     Dates: start: 20190201, end: 20190303
  4. LACOSAMIDE. [Suspect]
     Active Substance: LACOSAMIDE
     Dosage: 100 MILLIGRAM, 2X/DAY (BID)
     Route: 048
     Dates: start: 20190304, end: 20190310
  5. LACOSAMIDE. [Suspect]
     Active Substance: LACOSAMIDE
     Dosage: 250 MILLIGRAM, 2X/DAY (BID)
     Route: 048
     Dates: start: 201909
  6. LACOSAMIDE. [Suspect]
     Active Substance: LACOSAMIDE
     Dosage: 200 MILLIGRAM, 2X/DAY (BID)
     Route: 048
     Dates: start: 2019

REACTIONS (3)
  - Hemiparesis [Not Recovered/Not Resolved]
  - Tachycardia [Not Recovered/Not Resolved]
  - Headache [Recovering/Resolving]

NARRATIVE: CASE EVENT DATE: 20190201
